FAERS Safety Report 8216969-3 (Version None)
Quarter: 2012Q1

REPORT INFORMATION
  Report Type: 
  Country: None (occurrence: None)
  Receive Date: 20120319
  Receipt Date: 20120302
  Transmission Date: 20120608
  Serious: Yes (Hospitalization)
  Sender: FDA-Public Use
  Company Number: FR-AMGEN-FRACT2012014060

PATIENT
  Age: 47 Year
  Sex: Female
  Weight: 60 kg

DRUGS (18)
  1. PANTOPRAZOLE SODIUM [Concomitant]
     Indication: GASTROOESOPHAGEAL REFLUX DISEASE
     Dosage: 40 MG, UNK
     Route: 042
     Dates: start: 20120106
  2. SOLU-MEDROL [Concomitant]
     Dosage: 60 MG, UNK
     Dates: start: 20120105
  3. OXALIPLATIN [Concomitant]
     Dosage: 140 MG, UNK
     Route: 042
     Dates: start: 20120105
  4. DEXERYL [Concomitant]
  5. GAVISCON [Concomitant]
     Indication: GASTROOESOPHAGEAL REFLUX DISEASE
     Dosage: UNK
     Dates: start: 20111201, end: 20120101
  6. INNOHEP [Concomitant]
     Indication: THROMBOSIS
     Dosage: UNK
     Route: 058
     Dates: start: 20120106
  7. LEVOLEUCOVORIN CALCIUM [Concomitant]
     Dosage: 330 MG, UNK
     Route: 042
     Dates: start: 20120105
  8. PANTOPRAZOLE [Concomitant]
     Indication: GASTROOESOPHAGEAL REFLUX DISEASE
     Dosage: 40 MG, UNK
     Route: 042
     Dates: start: 20111230, end: 20120107
  9. FLUOROURACIL [Concomitant]
     Dosage: 660 UNK, UNK
     Route: 042
     Dates: start: 20120105
  10. PANITUMUMAB [Suspect]
     Indication: GASTROOESOPHAGEAL CANCER
     Dosage: 360 MG, UNK
     Route: 042
     Dates: start: 20120105
  11. ERYFLUID [Concomitant]
     Dosage: UNK
     Route: 061
     Dates: start: 20120106
  12. METHYLPREDNISOLONE [Concomitant]
     Dosage: 80 MG, UNK
     Dates: start: 20111231, end: 20120104
  13. PRIMPERAN TAB [Concomitant]
     Dosage: 20 MG, UNK
     Route: 042
     Dates: start: 20120106
  14. KABIVEN [Concomitant]
     Dosage: UNK
     Dates: start: 20120106
  15. DECAN [Concomitant]
     Dosage: UNK
     Dates: start: 20120106
  16. CERNEVIT-12 [Concomitant]
     Dosage: UNK
     Dates: start: 20120106
  17. DOXYCYCLINE [Concomitant]
     Dosage: 100 MG, QD
     Route: 048
     Dates: start: 20120106
  18. TRANXENE [Concomitant]
     Dosage: 20 MG, UNK
     Route: 042
     Dates: start: 20120106, end: 20120201

REACTIONS (5)
  - FUNCTIONAL GASTROINTESTINAL DISORDER [None]
  - DIARRHOEA [None]
  - ASTHENIA [None]
  - GENERAL PHYSICAL HEALTH DETERIORATION [None]
  - PULMONARY EMBOLISM [None]
